FAERS Safety Report 5924939-0 (Version None)
Quarter: 2008Q4

REPORT INFORMATION
  Report Type: 
  Country: None (occurrence: None)
  Receive Date: 20081020
  Receipt Date: 20081020
  Transmission Date: 20090506
  Serious: Yes (Hospitalization)
  Sender: FDA-Public Use
  Company Number: None

PATIENT
  Age: 85 Year
  Sex: Female

DRUGS (2)
  1. HYDROCODONE BITARTRATE AND ACETAMINOPHEN [Suspect]
     Dosage: PRN
     Route: 062
  2. FENTANYL-100 [Suspect]
     Dosage: 1 PATCH Q 72 HRS TOP
     Route: 061

REACTIONS (5)
  - ABASIA [None]
  - DELIRIUM [None]
  - ILL-DEFINED DISORDER [None]
  - RESPIRATORY DEPRESSION [None]
  - SOMNOLENCE [None]
